FAERS Safety Report 19350402 (Version 2)
Quarter: 2021Q2

REPORT INFORMATION
  Report Type: Spontaneous
  Country: IT (occurrence: IT)
  Receive Date: 20210531
  Receipt Date: 20210610
  Transmission Date: 20210717
  Serious: Yes (Life-Threatening)
  Sender: FDA-Public Use
  Company Number: IT-SA-2021SA178693

PATIENT
  Age: 72 Year
  Sex: Male
  Weight: 61 kg

DRUGS (1)
  1. OXALIPLATIN. [Suspect]
     Active Substance: OXALIPLATIN
     Indication: GASTRIC NEOPLASM
     Dosage: 200 UG/M2, QCY
     Route: 042
     Dates: start: 20210325, end: 20210506

REACTIONS (5)
  - Bronchospasm [Recovered/Resolved]
  - Dyspnoea [Recovered/Resolved]
  - Breath sounds abnormal [Recovered/Resolved]
  - Wheezing [Recovered/Resolved]
  - Oxygen saturation normal [Recovered/Resolved]

NARRATIVE: CASE EVENT DATE: 20210506
